FAERS Safety Report 17692192 (Version 5)
Quarter: 2021Q2

REPORT INFORMATION
  Report Type: Spontaneous
  Country: US (occurrence: US)
  Receive Date: 20200422
  Receipt Date: 20210430
  Transmission Date: 20210716
  Serious: No
  Sender: FDA-Public Use
  Company Number: US-PFIZER INC-2020155327

PATIENT
  Age: 70 Year
  Sex: Female
  Weight: 84.82 kg

DRUGS (5)
  1. LYRICA [Suspect]
     Active Substance: PREGABALIN
     Indication: HERPES ZOSTER
     Dosage: 3 DF, DAILY
  2. LYRICA [Suspect]
     Active Substance: PREGABALIN
     Indication: NEURALGIA
     Dosage: 2 DF (50, THREE A DAY BUT SHE COULD TAKE 2 A DAY INSTEAD WITH SAME EFFECT)
     Dates: end: 202009
  3. METFORMIN [Concomitant]
     Active Substance: METFORMIN HYDROCHLORIDE
     Indication: DIABETES MELLITUS
     Dosage: 500 MG
  4. LYRICA [Suspect]
     Active Substance: PREGABALIN
     Indication: PAIN IN EXTREMITY
     Dosage: UNK, AS NEEDED (BETWEEN 1 AND 3 DF DEPENDING ON NERVE PAIN FOR THE DAY)
     Route: 048
  5. LYRICA [Suspect]
     Active Substance: PREGABALIN
     Indication: BELL^S PALSY
     Dosage: 50 MG, 3X/DAY

REACTIONS (7)
  - Insomnia [Unknown]
  - Drug ineffective [Unknown]
  - Anxiety [Unknown]
  - Intentional product misuse [Unknown]
  - Neuralgia [Unknown]
  - Frustration tolerance decreased [Unknown]
  - Emotional disorder [Unknown]
